FAERS Safety Report 16482244 (Version 2)
Quarter: 2019Q3

REPORT INFORMATION
  Report Type: Report from Study
  Country: CZ (occurrence: CZ)
  Receive Date: 20190627
  Receipt Date: 20190912
  Transmission Date: 20191004
  Serious: Yes (Hospitalization)
  Sender: FDA-Public Use
  Company Number: CZ-B.I. PHARMACEUTICALS,INC./RIDGEFIELD-2019-BI-027361

PATIENT
  Age: 76 Year
  Sex: Male

DRUGS (4)
  1. AMIODARONE [Concomitant]
     Active Substance: AMIODARONE
     Indication: PRODUCT USED FOR UNKNOWN INDICATION
     Route: 048
  2. PRADAXA [Suspect]
     Active Substance: DABIGATRAN ETEXILATE MESYLATE
     Indication: ATRIAL FIBRILLATION
     Route: 048
  3. PRADAXA [Suspect]
     Active Substance: DABIGATRAN ETEXILATE MESYLATE
     Dosage: REDUCED DOSE OF DABIGATRAN.
     Route: 048
  4. FUROSEMID [FUROSEMIDE] [Concomitant]
     Active Substance: FUROSEMIDE
     Indication: PRODUCT USED FOR UNKNOWN INDICATION
     Route: 048

REACTIONS (10)
  - Haemodynamic instability [Recovered/Resolved]
  - Head injury [Recovered/Resolved]
  - Face injury [Recovered/Resolved]
  - Pharyngeal haemorrhage [Recovered/Resolved]
  - Cardiac arrest [Recovered/Resolved]
  - Eye injury [Recovered/Resolved]
  - Fall [Unknown]
  - Hypotension [Recovered/Resolved]
  - Tongue injury [Recovered/Resolved]
  - Bradycardia [Recovered/Resolved]

NARRATIVE: CASE EVENT DATE: 20190430
